FAERS Safety Report 4613477-3 (Version None)
Quarter: 2005Q1

REPORT INFORMATION
  Report Type: 
  Country: None (occurrence: None)
  Receive Date: 20050321
  Receipt Date: 20050113
  Transmission Date: 20050727
  Serious: Yes (Hospitalization, Other)
  Sender: FDA-Public Use
  Company Number: FR-BRISTOL-MYERS SQUIBB COMPANY-12825410

PATIENT
  Age: 74 Year
  Sex: Male
  Weight: 120 kg

DRUGS (8)
  1. SINEMET [Suspect]
     Indication: PARKINSON'S DISEASE
     Route: 048
     Dates: end: 20050101
  2. FORADIL [Concomitant]
  3. TRIVASTAL [Concomitant]
     Indication: PARKINSON'S DISEASE
  4. FUROSEMIDE [Concomitant]
     Indication: RENAL FAILURE CHRONIC
     Dates: end: 20050113
  5. KAYEXALATE [Concomitant]
  6. TRINIPATCH [Concomitant]
  7. MEDIATENSYL [Concomitant]
  8. ATACAND [Concomitant]
     Indication: HYPERTENSION
     Dates: end: 20050104

REACTIONS (4)
  - ACUTE RESPIRATORY FAILURE [None]
  - BLOOD PRESSURE INCREASED [None]
  - PANCYTOPENIA [None]
  - PNEUMONIA KLEBSIELLA [None]
